FAERS Safety Report 4921054-X (Version None)
Quarter: 2006Q1

REPORT INFORMATION
  Report Type: 
  Country: None (occurrence: None)
  Receive Date: 20060223
  Receipt Date: 20050426
  Transmission Date: 20060701
  Serious: Yes (Hospitalization)
  Sender: FDA-Public Use
  Company Number: US-MERCK-0504USA04969

PATIENT
  Age: 54 Year
  Sex: Male

DRUGS (10)
  1. VIOXX [Suspect]
     Route: 048
  2. DARVOCET-N 50 [Concomitant]
     Route: 065
  3. ASPIRIN [Concomitant]
     Route: 065
  4. ASPIRIN [Concomitant]
     Route: 048
  5. NEURONTIN [Concomitant]
     Route: 048
  6. NEXIUM [Concomitant]
     Route: 048
  7. TOPROL-XL [Concomitant]
     Route: 048
  8. NITROSTAT [Concomitant]
     Route: 060
  9. ZETIA [Concomitant]
     Route: 048
  10. LESCOL [Concomitant]
     Route: 048

REACTIONS (8)
  - BENIGN PROSTATIC HYPERPLASIA [None]
  - CATARACT [None]
  - CORNEAL ABRASION [None]
  - DIZZINESS [None]
  - INJURY [None]
  - MYOCARDIAL INFARCTION [None]
  - NECK INJURY [None]
  - RECTAL HAEMORRHAGE [None]
